FAERS Safety Report 11631938 (Version 2)
Quarter: 2015Q4

REPORT INFORMATION
  Report Type: Spontaneous
  Country: GB (occurrence: GB)
  Receive Date: 20151015
  Receipt Date: 20151028
  Transmission Date: 20160304
  Serious: Yes (Death)
  Sender: FDA-Public Use
  Company Number: GB-TEVA-598988ACC

PATIENT
  Age: 64 Year
  Sex: Female

DRUGS (2)
  1. SERTRALINE [Suspect]
     Active Substance: SERTRALINE HYDROCHLORIDE
     Dosage: BOLUS OVERDOSE
     Route: 065
  2. DIAZEPAM. [Suspect]
     Active Substance: DIAZEPAM
     Route: 065

REACTIONS (3)
  - Drowning [Fatal]
  - Completed suicide [Fatal]
  - Overdose [Fatal]

NARRATIVE: CASE EVENT DATE: 20060830
